FAERS Safety Report 4908859-6 (Version None)
Quarter: 2006Q1

REPORT INFORMATION
  Report Type: 
  Country: None (occurrence: None)
  Receive Date: 20060210
  Receipt Date: 20051208
  Transmission Date: 20060701
  Serious: No
  Sender: FDA-Public Use
  Company Number: US-GLAXOSMITHKLINE-A0585122A

PATIENT
  Age: 44 Year
  Sex: Male

DRUGS (3)
  1. PAXIL CR [Suspect]
     Dosage: 12.5MG PER DAY
     Route: 048
     Dates: start: 20051205
  2. AMBIEN [Concomitant]
     Route: 065
  3. XANAX [Concomitant]

REACTIONS (2)
  - FATIGUE [None]
  - NERVOUSNESS [None]
